FAERS Safety Report 11604938 (Version 1)
Quarter: 2015Q3

REPORT INFORMATION
  Report Type: Spontaneous
  Country: US (occurrence: US)
  Receive Date: 20150916
  Receipt Date: 20150916
  Transmission Date: 20151125
  Serious: No
  Sender: FDA-Public Use
  Company Number: US-ELI_LILLY_AND_COMPANY-US201404004117

PATIENT
  Age: 27 Year
  Sex: Female

DRUGS (3)
  1. GLUCOVANCE [Concomitant]
     Active Substance: GLYBURIDE\METFORMIN HYDROCHLORIDE
     Route: 065
  2. HUMALOG [Suspect]
     Active Substance: INSULIN LISPRO
     Indication: DIABETES MELLITUS
     Dosage: UNK
     Route: 065
     Dates: start: 2008
  3. LEVEMIR [Concomitant]
     Active Substance: INSULIN DETEMIR
     Route: 065

REACTIONS (1)
  - Gastroenteritis viral [Unknown]

NARRATIVE: CASE EVENT DATE: 201401
